FAERS Safety Report 17244056 (Version 2)
Quarter: 2020Q2

REPORT INFORMATION
  Report Type: Spontaneous
  Country: US (occurrence: US)
  Receive Date: 20200107
  Receipt Date: 20200512
  Transmission Date: 20200713
  Serious: Yes (Hospitalization, Other)
  Sender: FDA-Public Use
  Company Number: US-009507513-2001USA001098

PATIENT
  Age: 80 Year
  Sex: Male

DRUGS (13)
  1. PROSCAR [Suspect]
     Active Substance: FINASTERIDE
     Dosage: 1 TABLET, ONCE DAILY
     Route: 048
  2. ELIQUIS [Concomitant]
     Active Substance: APIXABAN
     Indication: ANTICOAGULANT THERAPY
     Dosage: 5 MILLIGRAM, BID
     Route: 048
     Dates: start: 20160125
  3. VYNDAQEL [Suspect]
     Active Substance: TAFAMIDIS MEGLUMINE
     Indication: AMYLOIDOSIS
     Dosage: 4 CAPSULES BY MOUTH ONCE DAILY.ALSO REPORTED AS 80 MG DAILY
     Route: 048
     Dates: start: 201908
  4. ALDACTONE [Concomitant]
     Active Substance: SPIRONOLACTONE
     Indication: CARDIAC FAILURE CONGESTIVE
     Dosage: UNK
  5. LANTUS [Concomitant]
     Active Substance: INSULIN GLARGINE
     Indication: TYPE 2 DIABETES MELLITUS
     Dosage: DOSE:34 UNITS, STRENGTH: 100 UNIT/ML (3 ML);
  6. JANUVIA [Suspect]
     Active Substance: SITAGLIPTIN PHOSPHATE
     Indication: TYPE 2 DIABETES MELLITUS
     Dosage: 100 MILLIGRAM, QD
     Route: 048
  7. MONODOX [Concomitant]
     Active Substance: DOXYCYCLINE
     Dosage: 100 MILLIGRAM, BID
     Route: 048
  8. HUMALOG PEN [Concomitant]
     Active Substance: INSULIN LISPRO
     Dosage: PER SLIDING SCALE
     Route: 058
  9. TRADJENTA [Concomitant]
     Active Substance: LINAGLIPTIN
     Dosage: 1 TABLET, QD
  10. LASIX [Concomitant]
     Active Substance: FUROSEMIDE
     Dosage: UNK
  11. MAGNESIUM OXIDE. [Concomitant]
     Active Substance: MAGNESIUM OXIDE
     Dosage: 500 MILLIGRAM, ONCE DAILY
     Route: 048
  12. CHOLECALCIFEROL [Concomitant]
     Active Substance: CHOLECALCIFEROL
     Dosage: 1000 UNITS, ONCE DAILY
     Route: 048
  13. THIOCTIC ACID [Concomitant]
     Active Substance: .ALPHA.-LIPOIC ACID
     Dosage: 600 MILLIGRAM, QD
     Route: 048

REACTIONS (4)
  - Cardiac amyloidosis [Unknown]
  - Diabetes mellitus inadequate control [Unknown]
  - Leukocytosis [Unknown]
  - Cardiac failure congestive [Recovered/Resolved]

NARRATIVE: CASE EVENT DATE: 201908
